FAERS Safety Report 7602258-4 (Version None)
Quarter: 2011Q3

REPORT INFORMATION
  Report Type: 
  Country: None (occurrence: None)
  Receive Date: 20110711
  Receipt Date: 20110630
  Transmission Date: 20111222
  Serious: Yes (Other)
  Sender: FDA-Public Use
  Company Number: US-AMGEN-USASP2011030914

PATIENT
  Age: 37 Year
  Sex: Female

DRUGS (2)
  1. ENBREL [Suspect]
     Dosage: 50 MG, QWK
     Dates: start: 20100728, end: 20110616
  2. ENBREL [Suspect]
     Indication: RHEUMATOID ARTHRITIS
     Dosage: 50 MG, QWK
     Dates: start: 20100728

REACTIONS (6)
  - SYSTEMIC LUPUS ERYTHEMATOSUS [None]
  - RESPIRATORY TRACT INFECTION [None]
  - PHOTOSENSITIVITY REACTION [None]
  - THERAPEUTIC RESPONSE DECREASED [None]
  - OPTIC NEURITIS [None]
  - RHEUMATOID ARTHRITIS [None]
